FAERS Safety Report 7157873-1 (Version None)
Quarter: 2010Q4

REPORT INFORMATION
  Report Type: 
  Country: None (occurrence: None)
  Receive Date: 20101130
  Receipt Date: 20101116
  Transmission Date: 20110411
  Serious: Yes (Hospitalization, Other)
  Sender: FDA-Public Use
  Company Number: 760359

PATIENT
  Age: 70 Year
  Sex: Female

DRUGS (3)
  1. CARBOPLATIN [Suspect]
     Indication: TRANSITIONAL CELL CARCINOMA
     Dosage: 450 MG MILLIGRAM(S),
  2. GEMCITABINE HCL [Suspect]
     Indication: TRANSITIONAL CELL CARCINOMA
     Dosage: 1500 MG MILLIGRAM(S)
  3. CISPLATIN [Suspect]
     Indication: TRANSITIONAL CELL CARCINOMA
     Dosage: 110 MG MILLIGRAM(S)

REACTIONS (12)
  - ANAEMIA [None]
  - ARTERIAL OCCLUSIVE DISEASE [None]
  - C-REACTIVE PROTEIN INCREASED [None]
  - CYANOSIS [None]
  - LEUKOCYTOSIS [None]
  - MALIGNANT NEOPLASM PROGRESSION [None]
  - OEDEMA [None]
  - PAIN [None]
  - PARAESTHESIA [None]
  - PERIPHERAL ISCHAEMIA [None]
  - SKIN ULCER HAEMORRHAGE [None]
  - TRANSITIONAL CELL CARCINOMA [None]
